FAERS Safety Report 18252741 (Version 1)
Quarter: 2020Q3

REPORT INFORMATION
  Report Type: Spontaneous
  Country: US (occurrence: US)
  Receive Date: 20200506
  Receipt Date: 20200506
  Transmission Date: 20201103
  Serious: Yes (Other)
  Sender: FDA-Public Use
  Company Number: None

PATIENT
  Age: 4 Decade
  Sex: Female

DRUGS (3)
  1. LOPINAVIR?RITONAVIR [Suspect]
     Active Substance: LOPINAVIR\RITONAVIR
  2. OSELTAMIVIR [Suspect]
     Active Substance: OSELTAMIVIR
  3. INTERFERON [Suspect]
     Active Substance: INTERFERON
     Indication: COVID-19

REACTIONS (8)
  - Diarrhoea [None]
  - Abdominal pain [None]
  - Disease progression [None]
  - Myalgia [None]
  - COVID-19 pneumonia [None]
  - Headache [None]
  - Pyrexia [None]
  - Lung opacity [None]
